FAERS Safety Report 8161134-1 (Version None)
Quarter: 2012Q1

REPORT INFORMATION
  Report Type: 
  Country: None (occurrence: None)
  Receive Date: 20120224
  Receipt Date: 20120221
  Transmission Date: 20120608
  Serious: Yes (Other)
  Sender: FDA-Public Use
  Company Number: US-PFIZER INC-2011269058

PATIENT
  Sex: Male

DRUGS (9)
  1. POTASSIUM CHLORIDE [Concomitant]
     Dosage: 10 MEQ, DAILY
     Route: 048
  2. GLUCOSAMINE [Concomitant]
     Dosage: UNK
  3. WARFARIN [Concomitant]
     Dosage: 5 MG, DAILY
     Route: 048
  4. MULTI-VITAMINS [Concomitant]
     Dosage: UNK
     Route: 048
  5. DILTIAZEM [Concomitant]
     Dosage: 180 MG, 2X/DAY
     Route: 048
  6. LASIX [Concomitant]
     Dosage: 20 MG, DAILY
     Route: 048
  7. EFFEXOR [Suspect]
     Indication: FIBROMYALGIA
     Dosage: 37.5 MG, 2X/DAY (75 MG 1/2 TAB BID)
     Route: 048
     Dates: start: 20111024, end: 20111024
  8. EFFEXOR [Suspect]
     Indication: MYALGIA
  9. ALLOPURINOL [Concomitant]
     Dosage: 300 MG, DAILY
     Route: 048

REACTIONS (16)
  - ATRIAL FIBRILLATION [None]
  - PARAESTHESIA [None]
  - TENSION HEADACHE [None]
  - INSOMNIA [None]
  - LIBIDO DECREASED [None]
  - HALLUCINATION [None]
  - PALPITATIONS [None]
  - HYPOAESTHESIA [None]
  - EMOTIONAL DISORDER [None]
  - MALAISE [None]
  - MUSCLE TIGHTNESS [None]
  - FEELING ABNORMAL [None]
  - TINNITUS [None]
  - DRUG INTOLERANCE [None]
  - ANXIETY [None]
  - RESTLESSNESS [None]
